FAERS Safety Report 7235654-8 (Version None)
Quarter: 2011Q1

REPORT INFORMATION
  Report Type: 
  Country: None (occurrence: None)
  Receive Date: 20110120
  Receipt Date: 20101013
  Transmission Date: 20110831
  Serious: No
  Sender: FDA-Public Use
  Company Number: US-BAYER-201022535BCC

PATIENT
  Sex: Female

DRUGS (2)
  1. MINOCYCLINE HCL [Concomitant]
  2. FINACEA [Suspect]

REACTIONS (1)
  - FLUSHING [None]
